FAERS Safety Report 5863132-7 (Version None)
Quarter: 2008Q3

REPORT INFORMATION
  Report Type: 
  Country: None (occurrence: None)
  Receive Date: 20080818
  Receipt Date: 20080623
  Transmission Date: 20090109
  Serious: No
  Sender: FDA-Public Use
  Company Number: WAES 0806USA08200

PATIENT
  Age: 75 Year
  Sex: Female

DRUGS (6)
  1. JANUVIA [Suspect]
     Dosage: PO
     Route: 048
     Dates: start: 20080101, end: 20080623
  2. DIOVAN [Concomitant]
  3. NEXIUM [Concomitant]
  4. PAXIL [Concomitant]
  5. SINGULAIR [Concomitant]
  6. VERAPAMIL [Concomitant]

REACTIONS (1)
  - LIP SWELLING [None]
